FAERS Safety Report 8114286-3 (Version None)
Quarter: 2012Q1

REPORT INFORMATION
  Report Type: 
  Country: None (occurrence: None)
  Receive Date: 20120206
  Receipt Date: 20120124
  Transmission Date: 20120608
  Serious: Yes (Hospitalization)
  Sender: FDA-Public Use
  Company Number: US-BIOGENIDEC-2011BI020061

PATIENT
  Age: 39 Year
  Sex: Female

DRUGS (3)
  1. AVONEX [Suspect]
     Route: 030
     Dates: start: 20080618, end: 20101231
  2. AVONEX [Suspect]
     Indication: MULTIPLE SCLEROSIS
     Route: 030
     Dates: start: 19960901, end: 20011231
  3. AVONEX [Suspect]
     Route: 030
     Dates: start: 20020901, end: 20070101

REACTIONS (1)
  - CAESAREAN SECTION [None]
